FAERS Safety Report 25325250 (Version 2)
Quarter: 2025Q2

REPORT INFORMATION
  Report Type: Report from Study
  Country: US (occurrence: US)
  Receive Date: 20250516
  Receipt Date: 20250605
  Transmission Date: 20250717
  Serious: Yes (Other)
  Sender: EMD SERONO INC
  Company Number: US-Merck Healthcare KGaA-2024062230

PATIENT
  Sex: Female
  Weight: 79 kg

DRUGS (2)
  1. MAVENCLAD [Suspect]
     Active Substance: CLADRIBINE
     Indication: Multiple sclerosis
  2. MAVENCLAD [Suspect]
     Active Substance: CLADRIBINE

REACTIONS (16)
  - Weight increased [Unknown]
  - Malaise [Unknown]
  - Fatigue [Not Recovered/Not Resolved]
  - Headache [Unknown]
  - Anal incontinence [Unknown]
  - Urinary incontinence [Unknown]
  - Memory impairment [Unknown]
  - Condition aggravated [Unknown]
  - Asthenia [Unknown]
  - Hypersomnia [Unknown]
  - Influenza like illness [Unknown]
  - Hyperhidrosis [Unknown]
  - Contusion [Unknown]
  - Fall [Unknown]
  - Head injury [Unknown]
  - Depression [Unknown]
